FAERS Safety Report 6895494-6 (Version None)
Quarter: 2010Q3

REPORT INFORMATION
  Report Type: 
  Country: None (occurrence: None)
  Receive Date: 20100802
  Receipt Date: 20100726
  Transmission Date: 20110219
  Serious: Yes (Life-Threatening, Hospitalization)
  Sender: FDA-Public Use
  Company Number: PHEH2010US01435

PATIENT
  Sex: Female

DRUGS (2)
  1. EXJADE [Suspect]
     Indication: SICKLE CELL ANAEMIA
     Dosage: 2000 MG, DAILY
     Route: 048
  2. EXJADE [Suspect]
     Dosage: 2000 MG, QD
     Route: 048

REACTIONS (6)
  - CARDIAC FAILURE [None]
  - MALAISE [None]
  - PAIN [None]
  - SICKLE CELL ANAEMIA WITH CRISIS [None]
  - TERMINAL STATE [None]
  - TREATMENT NONCOMPLIANCE [None]
